FAERS Safety Report 13076282 (Version 1)
Quarter: 2016Q4

REPORT INFORMATION
  Report Type: Spontaneous
  Country: CN (occurrence: CN)
  Receive Date: 20161230
  Receipt Date: 20161230
  Transmission Date: 20170207
  Serious: Yes (Hospitalization, Other)
  Sender: FDA-Public Use
  Company Number: CN-GLAXOSMITHKLINE-CN2016GSK191871

PATIENT
  Age: 64 Year
  Sex: Male

DRUGS (4)
  1. LAMOTRIGINE. [Suspect]
     Active Substance: LAMOTRIGINE
     Indication: EPILEPSY
     Dosage: 25 MG, UNK
  2. VALPROATE SODIUM. [Concomitant]
     Active Substance: VALPROATE SODIUM
  3. CARBAMAZEPINE. [Concomitant]
     Active Substance: CARBAMAZEPINE
  4. TOPIRAMATE. [Concomitant]
     Active Substance: TOPIRAMATE

REACTIONS (16)
  - Delirium [Recovered/Resolved]
  - Gait disturbance [Unknown]
  - Drug eruption [Recovered/Resolved]
  - Lip oedema [Recovered/Resolved]
  - Drug reaction with eosinophilia and systemic symptoms [Recovered/Resolved]
  - Erythema [Recovered/Resolved]
  - Depressed level of consciousness [Recovered/Resolved]
  - Rash [Recovered/Resolved]
  - Mouth ulceration [Recovered/Resolved]
  - Rash maculo-papular [Recovered/Resolved]
  - Generalised tonic-clonic seizure [Recovered/Resolved]
  - Measles [Recovered/Resolved]
  - Skin exfoliation [Recovered/Resolved]
  - Seizure [Recovered/Resolved]
  - Pyrexia [Recovered/Resolved]
  - Aphasia [Recovered/Resolved]
